FAERS Safety Report 16676162 (Version 1)
Quarter: 2019Q3

REPORT INFORMATION
  Report Type: Spontaneous
  Country: US (occurrence: US)
  Receive Date: 20190807
  Receipt Date: 20190807
  Transmission Date: 20191004
  Serious: No
  Sender: FDA-Public Use
  Company Number: US-BIOGEN-2019BI00771507

PATIENT
  Sex: Female

DRUGS (1)
  1. AVONEX [Suspect]
     Active Substance: INTERFERON BETA-1A
     Indication: MULTIPLE SCLEROSIS
     Dosage: INJECT 30 MCG INTRAMUSCULARLY ONCE WEEKLY
     Route: 030

REACTIONS (7)
  - Pyrexia [Unknown]
  - Urinary tract infection [Unknown]
  - Asthenia [Unknown]
  - Accident [Unknown]
  - Fatigue [Unknown]
  - Fall [Recovered/Resolved]
  - Balance disorder [Unknown]
